FAERS Safety Report 24858680 (Version 1)
Quarter: 2025Q1

REPORT INFORMATION
  Report Type: Spontaneous
  Country: US (occurrence: US)
  Receive Date: 20250118
  Receipt Date: 20250118
  Transmission Date: 20250409
  Serious: No
  Sender: AMGEN
  Company Number: US-AMGEN-USASP2025008277

PATIENT
  Sex: Male

DRUGS (18)
  1. OTEZLA [Suspect]
     Active Substance: APREMILAST
     Indication: Psoriasis
     Dosage: 30 MILLIGRAM, BID
     Route: 048
     Dates: start: 20220422
  2. ATORVASTATIN [Concomitant]
     Active Substance: ATORVASTATIN
  3. ATORVASTATIN [Concomitant]
     Active Substance: ATORVASTATIN
  4. CYCLOBENZAPRINE [Concomitant]
     Active Substance: CYCLOBENZAPRINE
  5. DICLOFENAC [Concomitant]
     Active Substance: DICLOFENAC
  6. ELIQUIS [Concomitant]
     Active Substance: APIXABAN
  7. FLUTICASONE [Concomitant]
     Active Substance: FLUTICASONE
  8. GABAPENTIN [Concomitant]
     Active Substance: GABAPENTIN
  9. GABAPENTIN [Concomitant]
     Active Substance: GABAPENTIN
  10. HYDROCHLOROTHIAZIDE [Concomitant]
     Active Substance: HYDROCHLOROTHIAZIDE
  11. IPRATROPIUM [Concomitant]
     Active Substance: IPRATROPIUM
  12. KENALOG [Concomitant]
     Active Substance: TRIAMCINOLONE ACETONIDE
  13. LISINOPRIL [Concomitant]
     Active Substance: LISINOPRIL
  14. LISINOPRIL [Concomitant]
     Active Substance: LISINOPRIL
  15. ACETAMINOPHEN\OXYCODONE HYDROCHLORIDE [Concomitant]
     Active Substance: ACETAMINOPHEN\OXYCODONE HYDROCHLORIDE
  16. TRAZODONE [Concomitant]
     Active Substance: TRAZODONE HYDROCHLORIDE
  17. XTAMPZA ER [Concomitant]
     Active Substance: OXYCODONE
  18. XTAMPZA ER [Concomitant]
     Active Substance: OXYCODONE

REACTIONS (2)
  - Therapy non-responder [Unknown]
  - Pain [Unknown]
